FAERS Safety Report 14149242 (Version 3)
Quarter: 2018Q2

REPORT INFORMATION
  Report Type: Spontaneous
  Country: JP (occurrence: JP)
  Receive Date: 20171101
  Receipt Date: 20180613
  Transmission Date: 20180711
  Serious: Yes (Death, Life-Threatening, Hospitalization, Disabling, Other)
  Sender: FDA-Public Use
  Company Number: JP-MYLANLABS-2017M1067555

PATIENT
  Age: 45 Year
  Sex: Female

DRUGS (36)
  1. GRANISETRON [Suspect]
     Active Substance: GRANISETRON
     Dosage: 3 MG, CYCLE
     Route: 042
     Dates: start: 20170628
  2. GEMCITABINE [Suspect]
     Active Substance: GEMCITABINE\GEMCITABINE HYDROCHLORIDE
     Dosage: 1300 MG, CYCLE
     Route: 042
     Dates: start: 20170614
  3. AVASTIN [Suspect]
     Active Substance: BEVACIZUMAB
     Dosage: 580 MG, CYCLE
     Route: 042
     Dates: start: 20170628
  4. DECADRON [Suspect]
     Active Substance: DEXAMETHASONE
     Indication: PREMEDICATION
     Dosage: 4 MG, CYCLE
     Route: 048
     Dates: start: 20170511
  5. CARBOPLATIN INJ. 50MG ^NK^ [Suspect]
     Active Substance: CARBOPLATIN
     Dosage: 490 MG, CYCLE
     Route: 042
     Dates: start: 20170628
  6. GRANISETRON [Suspect]
     Active Substance: GRANISETRON
     Dosage: 3 MG, CYCLE
     Route: 042
     Dates: start: 20170607
  7. DECADRON [Suspect]
     Active Substance: DEXAMETHASONE
     Dosage: 6.6 MG, CYCLE
     Route: 042
     Dates: start: 20170705
  8. DECADRON [Suspect]
     Active Substance: DEXAMETHASONE
     Dosage: 4 MG, CYCLE
     Route: 048
     Dates: start: 20170512
  9. EMEND [Suspect]
     Active Substance: APREPITANT
     Dosage: 80 MG, CYCLE
     Route: 048
     Dates: start: 20170609
  10. EMEND [Suspect]
     Active Substance: APREPITANT
     Dosage: 80 MG, CYCLE
     Route: 048
     Dates: start: 20170630
  11. GEMCITABINE [Suspect]
     Active Substance: GEMCITABINE\GEMCITABINE HYDROCHLORIDE
     Dosage: 1300 MG, CYCLE
     Route: 042
     Dates: start: 20170628
  12. GEMCITABINE [Suspect]
     Active Substance: GEMCITABINE\GEMCITABINE HYDROCHLORIDE
     Dosage: 1300 MG, CYCLE
     Route: 042
     Dates: start: 20170705
  13. AVASTIN [Suspect]
     Active Substance: BEVACIZUMAB
     Indication: OVARIAN CANCER
     Dosage: 580 MG, CYCLE
     Route: 042
     Dates: start: 20170510
  14. DECADRON [Suspect]
     Active Substance: DEXAMETHASONE
     Dosage: 4.95 MG, CYCLE
     Route: 042
     Dates: start: 20170628
  15. DECADRON [Suspect]
     Active Substance: DEXAMETHASONE
     Dosage: 4 MG, CYCLE
     Route: 048
     Dates: start: 20170608
  16. DECADRON [Suspect]
     Active Substance: DEXAMETHASONE
     Dosage: 4 MG, CYCLE
     Route: 048
     Dates: start: 20170609
  17. DECADRON [Suspect]
     Active Substance: DEXAMETHASONE
     Dosage: 4 MG, CYCLE
     Route: 048
     Dates: start: 20170629
  18. EMEND [Suspect]
     Active Substance: APREPITANT
     Dosage: 80 MG, CYCLE
     Route: 048
     Dates: start: 20170629
  19. DECADRON [Suspect]
     Active Substance: DEXAMETHASONE
     Indication: PREMEDICATION
     Dosage: 4.95 MG, CYCLE
     Route: 042
     Dates: start: 20170510
  20. DECADRON [Suspect]
     Active Substance: DEXAMETHASONE
     Dosage: 6.6 MG, CYCLE
     Route: 042
     Dates: start: 20170614
  21. EMEND [Suspect]
     Active Substance: APREPITANT
     Dosage: 125 MG, CYCLE
     Route: 048
     Dates: start: 20170510
  22. GEMCITABINE [Suspect]
     Active Substance: GEMCITABINE\GEMCITABINE HYDROCHLORIDE
     Dosage: 1300 MG, CYCLE
     Route: 042
     Dates: start: 20170607
  23. EMEND [Suspect]
     Active Substance: APREPITANT
     Dosage: 80 MG, CYCLE
     Route: 048
     Dates: start: 20170512
  24. EMEND [Suspect]
     Active Substance: APREPITANT
     Dosage: 125 MG, CYCLE
     Route: 048
     Dates: start: 20170607
  25. EMEND [Suspect]
     Active Substance: APREPITANT
     Dosage: 125 MG, CYCLE
     Route: 048
     Dates: start: 20170628
  26. CARBOPLATIN INJ. 50MG ^NK^ [Suspect]
     Active Substance: CARBOPLATIN
     Dosage: 490 MG, CYCLE
     Route: 042
     Dates: start: 20170607
  27. GRANISETRON [Suspect]
     Active Substance: GRANISETRON
     Indication: PREMEDICATION
     Dosage: 3 MG, CYCLE
     Route: 042
     Dates: start: 20170510
  28. GEMCITABINE [Suspect]
     Active Substance: GEMCITABINE\GEMCITABINE HYDROCHLORIDE
     Indication: OVARIAN CANCER
     Dosage: 1300 MG, CYCLE
     Route: 042
     Dates: start: 20170510
  29. GEMCITABINE [Suspect]
     Active Substance: GEMCITABINE\GEMCITABINE HYDROCHLORIDE
     Indication: PREMEDICATION
     Dosage: 1300 MG, CYCLE
     Route: 042
     Dates: start: 20170517
  30. AVASTIN [Suspect]
     Active Substance: BEVACIZUMAB
     Dosage: 580 MG, CYCLE
     Route: 042
     Dates: start: 20170607
  31. DECADRON [Suspect]
     Active Substance: DEXAMETHASONE
     Dosage: 4.95 MG, CYCLE
     Route: 042
     Dates: start: 20170607
  32. EMEND [Suspect]
     Active Substance: APREPITANT
     Indication: PREMEDICATION
     Dosage: 80 MG, CYCLE
     Route: 048
     Dates: start: 20170511
  33. CARBOPLATIN INJ. 50MG ^NK^ [Suspect]
     Active Substance: CARBOPLATIN
     Indication: OVARIAN CANCER
     Dosage: 490 MG, CYCLE
     Route: 042
     Dates: start: 20170510
  34. DECADRON [Suspect]
     Active Substance: DEXAMETHASONE
     Dosage: 6.6 MG, CYCLE
     Route: 042
     Dates: start: 20170517
  35. DECADRON [Suspect]
     Active Substance: DEXAMETHASONE
     Dosage: 4 MG, CYCLE
     Route: 048
     Dates: start: 20170630
  36. EMEND [Suspect]
     Active Substance: APREPITANT
     Dosage: 80 MG, CYCLE
     Route: 048
     Dates: start: 20170608

REACTIONS (4)
  - Pleural effusion [Not Recovered/Not Resolved]
  - Intracardiac thrombus [Not Recovered/Not Resolved]
  - Cardiac failure [Fatal]
  - Cardiomegaly [Not Recovered/Not Resolved]

NARRATIVE: CASE EVENT DATE: 20170726
